FAERS Safety Report 16232979 (Version 13)
Quarter: 2020Q3

REPORT INFORMATION
  Report Type: Spontaneous
  Country: US (occurrence: US)
  Receive Date: 20190424
  Receipt Date: 20200728
  Transmission Date: 20201102
  Serious: No
  Sender: FDA-Public Use
  Company Number: US-PFIZER INC-2019169727

PATIENT
  Age: 39 Year
  Sex: Female
  Weight: 131 kg

DRUGS (1)
  1. VENLAFAXINE HCL [Suspect]
     Active Substance: VENLAFAXINE HYDROCHLORIDE
     Indication: ANXIETY
     Dosage: 75 MG, 2X/DAY
     Route: 048

REACTIONS (6)
  - Drug ineffective [Unknown]
  - Agitation [Recovered/Resolved]
  - Weight increased [Unknown]
  - Crying [Unknown]
  - Communication disorder [Unknown]
  - Nightmare [Recovered/Resolved]
